FAERS Safety Report 9644508 (Version 2)
Quarter: 2014Q1

REPORT INFORMATION
  Report Type: Spontaneous
  Country: US (occurrence: US)
  Receive Date: 20131025
  Receipt Date: 20140116
  Transmission Date: 20141002
  Serious: Yes (Death, Hospitalization)
  Sender: FDA-Public Use
  Company Number: US-BRISTOL-MYERS SQUIBB COMPANY-19577188

PATIENT
  Age: 5 Decade
  Sex: Male

DRUGS (1)
  1. YERVOY [Suspect]
     Indication: MALIGNANT MELANOMA
     Dates: start: 20130904

REACTIONS (5)
  - Gastrointestinal haemorrhage [Fatal]
  - Drug administration error [Unknown]
  - Hyperglycaemia [Unknown]
  - Hyperuricaemia [Unknown]
  - Fluid retention [Unknown]
